FAERS Safety Report 6994091-1 (Version None)
Quarter: 2010Q3

REPORT INFORMATION
  Report Type: 
  Country: None (occurrence: None)
  Receive Date: 20100917
  Receipt Date: 20070601
  Transmission Date: 20110219
  Serious: Yes (Other)
  Sender: FDA-Public Use
  Company Number: US-ASTRAZENECA-2007UW03169

PATIENT
  Age: 17309 Day
  Sex: Male
  Weight: 78 kg

DRUGS (18)
  1. SEROQUEL [Suspect]
     Indication: BIPOLAR DISORDER
     Dosage: 300-800 MG
     Route: 048
     Dates: start: 20050421
  2. SEROQUEL [Suspect]
     Route: 048
     Dates: start: 20050401
  3. SEROQUEL [Suspect]
     Route: 048
     Dates: start: 20061101
  4. ABILIFY [Concomitant]
  5. GEODON [Concomitant]
  6. NEURONTIN [Concomitant]
     Route: 048
  7. CYMBALTA [Concomitant]
     Route: 048
  8. NEXIUM [Concomitant]
     Route: 048
  9. TOPROL-XL [Concomitant]
     Route: 048
  10. GLUCOPHAGE [Concomitant]
     Route: 048
  11. ZOCOR [Concomitant]
     Route: 048
  12. PREVACID [Concomitant]
     Route: 048
  13. DARVOCET-N 100 [Concomitant]
     Dosage: AS NEEDED
  14. TRAZODONE HCL [Concomitant]
     Dosage: 50-300 MG
     Route: 048
     Dates: start: 20050421
  15. AMBIEN [Concomitant]
     Indication: INSOMNIA
     Dates: start: 20061114
  16. COGENTIN [Concomitant]
     Route: 048
     Dates: start: 20070409
  17. PROTONIX [Concomitant]
     Indication: GASTROOESOPHAGEAL REFLUX DISEASE
     Dates: start: 20070409
  18. KLONOPIN [Concomitant]
     Route: 048
     Dates: start: 20070409

REACTIONS (5)
  - DIABETES MELLITUS INADEQUATE CONTROL [None]
  - KETOACIDOSIS [None]
  - PANCREATITIS ACUTE [None]
  - TYPE 1 DIABETES MELLITUS [None]
  - TYPE 2 DIABETES MELLITUS [None]
